FAERS Safety Report 5774589-4 (Version None)
Quarter: 2008Q2

REPORT INFORMATION
  Report Type: 
  Country: None (occurrence: None)
  Receive Date: 20080612
  Receipt Date: 20080606
  Transmission Date: 20081010
  Serious: Yes (Death, Hospitalization)
  Sender: FDA-Public Use
  Company Number: 2008SP011151

PATIENT
  Age: 66 Year
  Sex: Female
  Weight: 63.05 kg

DRUGS (13)
  1. TEMOZOLOMIDE [Suspect]
     Indication: LEIOMYOSARCOMA
     Dosage: 140 MG;QD;PO
     Route: 048
     Dates: start: 20080226, end: 20080511
  2. ATIVAN [Concomitant]
  3. CRESTOR [Concomitant]
  4. METOPROLOL TARTRATE [Concomitant]
  5. NEURONTIN [Concomitant]
  6. PRILOSEC [Concomitant]
  7. ZOFRAN [Concomitant]
  8. ASPIRIN [Concomitant]
  9. CALCIUM [Concomitant]
  10. COLACE [Concomitant]
  11. M.V.I. [Concomitant]
  12. OMEGA 3 FISH OIL [Concomitant]
  13. VITAMIN D [Concomitant]

REACTIONS (4)
  - HAEMOGLOBIN DECREASED [None]
  - IDIOPATHIC THROMBOCYTOPENIC PURPURA [None]
  - SUBARACHNOID HAEMORRHAGE [None]
  - TREATMENT FAILURE [None]
